FAERS Safety Report 20884303 (Version 2)
Quarter: 2022Q3

REPORT INFORMATION
  Report Type: Spontaneous
  Country: FR (occurrence: FR)
  Receive Date: 20220527
  Receipt Date: 20220819
  Transmission Date: 20221026
  Serious: Yes (Hospitalization)
  Sender: FDA-Public Use
  Company Number: None

PATIENT
  Age: 58 Year
  Sex: Female
  Weight: 60 kg

DRUGS (17)
  1. TYGACIL [Suspect]
     Active Substance: TIGECYCLINE
     Dosage: 50 MG, 2X/DAY
     Route: 042
     Dates: start: 20210609, end: 20210611
  2. DOXYCYCLINE [Suspect]
     Active Substance: DOXYCYCLINE
     Indication: Psoriasis
     Dosage: UNK
     Dates: end: 20210609
  3. NOREPINEPHRINE\NOREPINEPHRINE BITARTRATE [Suspect]
     Active Substance: NOREPINEPHRINE\NOREPINEPHRINE BITARTRATE
     Indication: Shock
     Dosage: UNK
     Route: 042
     Dates: start: 20210609, end: 20210611
  4. PANTOPRAZOLE SODIUM [Suspect]
     Active Substance: PANTOPRAZOLE SODIUM
     Indication: Mallory-Weiss syndrome
     Dosage: 80 MG, 1X/DAY
     Route: 042
     Dates: start: 20210610, end: 20210615
  5. PREDNISONE [Suspect]
     Active Substance: PREDNISONE
     Indication: Psoriasis
     Dosage: UNK
     Dates: end: 20210609
  6. AMIKACIN [Suspect]
     Active Substance: AMIKACIN
     Indication: Septic shock
     Dosage: UNK
     Route: 042
     Dates: start: 20210609, end: 20210609
  7. KANOKAD [Suspect]
     Active Substance: COAGULATION FACTOR VII HUMAN\COAGULATION FACTOR X HUMAN\FACTOR IX COMPLEX\PROTHROMBIN
     Indication: Anticoagulation drug level increased
     Dosage: 1500 IU, 1X/DAY
     Route: 042
     Dates: start: 20210610, end: 20210610
  8. METRONIDAZOLE [Suspect]
     Active Substance: METRONIDAZOLE
     Indication: Septic shock
     Dosage: 500 MG, 3X/DAY
     Route: 042
     Dates: start: 20210609, end: 20210611
  9. ERYTHROMYCIN [Suspect]
     Active Substance: ERYTHROMYCIN
     Indication: Oesophagogastroduodenoscopy
     Dosage: 500 MG, 1X/DAY
     Route: 042
     Dates: start: 20210610, end: 20210610
  10. IOMERON [Suspect]
     Active Substance: IOMEPROL
     Indication: Computerised tomogram
     Dosage: 1 DF, 1X/DAY
     Route: 042
     Dates: start: 20210610, end: 20210610
  11. HYDROCORTISONE [Suspect]
     Active Substance: HYDROCORTISONE
     Indication: Shock haemorrhagic
     Dosage: 100 MG, 1X/DAY
     Route: 042
     Dates: start: 20210609, end: 20210611
  12. PRIMPERAN [Suspect]
     Active Substance: METOCLOPRAMIDE HYDROCHLORIDE
     Indication: Vomiting
     Dosage: 10 MG, 3X/DAY
     Route: 042
     Dates: start: 20210610, end: 20210612
  13. NERISONE [Suspect]
     Active Substance: DIFLUCORTOLONE VALERATE
     Indication: Psoriasis
     Dosage: UNK
     Dates: end: 20210609
  14. PHYTONADIONE [Suspect]
     Active Substance: PHYTONADIONE
     Indication: Anticoagulation drug level increased
     Dosage: 10 MG, 1X/DAY
     Route: 042
     Dates: start: 20210610, end: 20210610
  15. FOLIC ACID [Concomitant]
     Active Substance: FOLIC ACID
     Dosage: UNK
  16. METHOTREXATE [Concomitant]
     Active Substance: METHOTREXATE
     Dosage: UNK
  17. PERINDOPRIL [Concomitant]
     Active Substance: PERINDOPRIL
     Dosage: UNK

REACTIONS (1)
  - Pustular psoriasis [Recovered/Resolved]

NARRATIVE: CASE EVENT DATE: 20210611
